FAERS Safety Report 22045363 (Version 2)
Quarter: 2023Q2

REPORT INFORMATION
  Report Type: Spontaneous
  Country: US (occurrence: US)
  Receive Date: 20230228
  Receipt Date: 20230630
  Transmission Date: 20230722
  Serious: No
  Sender: FDA-Public Use
  Company Number: US-PFIZER INC-PV202300037904

PATIENT
  Age: 71 Year
  Sex: Female

DRUGS (2)
  1. IBRANCE [Suspect]
     Active Substance: PALBOCICLIB
     Dosage: 125 MG, CYCLIC (TAKE 1 TABLET PO QD ON DAYS 1-21 EVERY 28 DAYS)
     Route: 048
     Dates: end: 20221021
  2. IBRANCE [Suspect]
     Active Substance: PALBOCICLIB
     Dosage: 125 MG, CYCLIC (TAKE 1 TABLET PO QD ON DAYS 1-21 EVERY 28 DAYS)
     Route: 048
     Dates: end: 20221118

REACTIONS (1)
  - Alopecia [Unknown]
